FAERS Safety Report 4853438-2 (Version None)
Quarter: 2005Q4

REPORT INFORMATION
  Report Type: 
  Country: None (occurrence: None)
  Receive Date: 20051214
  Receipt Date: 20050304
  Transmission Date: 20060501
  Serious: Yes (Hospitalization, Disabling)
  Sender: FDA-Public Use
  Company Number: US-MERCK-0503USA01045

PATIENT
  Age: 60 Year
  Sex: Male
  Weight: 125 kg

DRUGS (4)
  1. VIOXX [Suspect]
     Indication: PAIN
     Route: 048
     Dates: start: 20010101, end: 20030101
  2. LANTUS [Concomitant]
     Route: 065
  3. METFORMIN [Concomitant]
     Route: 065
  4. HYZAAR [Concomitant]
     Route: 065

REACTIONS (4)
  - BACK INJURY [None]
  - CHEST PAIN [None]
  - LIMB INJURY [None]
  - MYOCARDIAL INFARCTION [None]
